FAERS Safety Report 7152939-4 (Version None)
Quarter: 2010Q4

REPORT INFORMATION
  Report Type: 
  Country: None (occurrence: None)
  Receive Date: 20101213
  Receipt Date: 20101130
  Transmission Date: 20110411
  Serious: Yes (Other)
  Sender: FDA-Public Use
  Company Number: US-JNJFOC-20101202726

PATIENT
  Age: 17 Year
  Sex: Male

DRUGS (13)
  1. INFLIXIMAB, RECOMBINANT [Suspect]
     Indication: CHRONIC GRANULOMATOUS DISEASE
     Dosage: INFECTION OCCURRED AFTER 5TH OR 6TH INFUSION
     Route: 042
  2. INFLIXIMAB, RECOMBINANT [Suspect]
     Route: 042
  3. PREDNISOLONE [Concomitant]
     Indication: CHRONIC GRANULOMATOUS DISEASE
  4. MERCAPTOPURINE [Concomitant]
     Indication: CHRONIC GRANULOMATOUS DISEASE
  5. TRIMETHOPRIM + SULFAMETHOXAZOLE [Concomitant]
     Indication: INFECTION PROPHYLAXIS
  6. POSACONAZOLE [Concomitant]
     Indication: INFECTION PROPHYLAXIS
  7. AMOXICILLIN AND CLAVULANATE POTASSIUM [Concomitant]
     Indication: INFECTION PROPHYLAXIS
  8. METRONIDAZOLE [Concomitant]
     Indication: INFECTION PROPHYLAXIS
  9. CIPROFLOXACIN [Concomitant]
     Indication: INFECTION PROPHYLAXIS
  10. MESALAMINE [Concomitant]
     Indication: CHRONIC GRANULOMATOUS DISEASE
  11. LEVOFLOXACIN [Concomitant]
     Indication: INFECTION PROPHYLAXIS
  12. ERTAPENEM [Concomitant]
     Indication: INFECTION PROPHYLAXIS
  13. INTERFERON GAMMA [Concomitant]

REACTIONS (2)
  - LIVER ABSCESS [None]
  - STAPHYLOCOCCAL INFECTION [None]
